FAERS Safety Report 9378210 (Version 2)
Quarter: 2013Q3

REPORT INFORMATION
  Report Type: Spontaneous
  Country: DE (occurrence: DE)
  Receive Date: 20130701
  Receipt Date: 20130822
  Transmission Date: 20140515
  Serious: Yes (Disabling)
  Sender: FDA-Public Use
  Company Number: DE-GLAXOSMITHKLINE-D0080186A

PATIENT
  Age: 78 Year
  Sex: Male
  Weight: 95 kg

DRUGS (3)
  1. DUODART [Suspect]
     Indication: PROSTATIC DISORDER
     Route: 048
     Dates: start: 20110922
  2. METFORMIN [Suspect]
     Route: 048
     Dates: end: 201307
  3. MULTIPLE MEDICATIONS [Concomitant]
     Route: 065

REACTIONS (6)
  - Faeces discoloured [Not Recovered/Not Resolved]
  - Faeces soft [Not Recovered/Not Resolved]
  - Anorectal discomfort [Not Recovered/Not Resolved]
  - Defaecation urgency [Not Recovered/Not Resolved]
  - Weight decreased [Unknown]
  - Food interaction [Unknown]
